FAERS Safety Report 5170303-4 (Version None)
Quarter: 2006Q4

REPORT INFORMATION
  Report Type: 
  Country: None (occurrence: None)
  Receive Date: 20061204
  Receipt Date: 20061121
  Transmission Date: 20070319
  Serious: Yes (Life-Threatening, Hospitalization, Other)
  Sender: FDA-Public Use
  Company Number: GXKR2006NO07530

PATIENT
  Age: 81 Year
  Sex: Female

DRUGS (4)
  1. INDOMETHACIN [Suspect]
     Indication: MIGRAINE WITHOUT AURA
     Dosage: 75 MG, QD, THEN SEVERAL REDUCED DOSES
     Dates: start: 19830101, end: 20010101
  2. ASPIRIN [Concomitant]
     Indication: MIGRAINE WITHOUT AURA
     Dosage: UP TO 6 G, QD
  3. CIMETIDINE [Concomitant]
  4. OMEPRAZOLE [Concomitant]

REACTIONS (7)
  - ANAEMIA [None]
  - GASTRIC ULCER [None]
  - GASTRIC ULCER HAEMORRHAGE [None]
  - GASTRITIS [None]
  - PYREXIA [None]
  - SYNCOPE [None]
  - VENOUS THROMBOSIS [None]
